FAERS Safety Report 14309514 (Version 2)
Quarter: 2018Q1

REPORT INFORMATION
  Report Type: Spontaneous
  Country: JP (occurrence: JP)
  Receive Date: 20171220
  Receipt Date: 20180111
  Transmission Date: 20180509
  Serious: Yes (Hospitalization)
  Sender: FDA-Public Use
  Company Number: JP-ELI_LILLY_AND_COMPANY-JP201711004149

PATIENT
  Age: 82 Year
  Sex: Female
  Weight: 60 kg

DRUGS (17)
  1. CRESTOR [Concomitant]
     Active Substance: ROSUVASTATIN CALCIUM
     Indication: LIPID METABOLISM DISORDER
     Dosage: 2.5 MG, DAILY
     Route: 048
  2. BREDININ [Concomitant]
     Active Substance: MIZORIBINE
     Indication: RHEUMATIC DISORDER
     Dosage: 100 MG, DAILY
  3. THYRADIN S [Concomitant]
     Active Substance: LEVOTHYROXINE SODIUM
     Dosage: 25 UG, DAILY
     Route: 048
  4. SHAKUYAKUKANZOTO [Concomitant]
     Active Substance: HERBALS
     Dosage: 4 G, DAILY
     Route: 048
  5. LOXONIN [Concomitant]
     Active Substance: LOXOPROFEN SODIUM
     Dosage: UNK
     Route: 062
  6. BAYASPIRIN [Concomitant]
     Active Substance: ASPIRIN
     Indication: CEREBROVASCULAR ACCIDENT PROPHYLAXIS
     Dosage: 100 MG, DAILY
     Route: 048
  7. DULOXETINE HYDROCHLORIDE. [Suspect]
     Active Substance: DULOXETINE HYDROCHLORIDE
     Indication: OSTEOARTHRITIS
     Dosage: 20 MG, DAILY
     Route: 048
     Dates: start: 20171107, end: 20171108
  8. LYRICA [Concomitant]
     Active Substance: PREGABALIN
     Indication: NEURALGIA
     Dosage: 225 MG, DAILY
     Route: 048
  9. TAKECAB [Concomitant]
     Active Substance: VONOPRAZAN FUMURATE
     Indication: GASTROOESOPHAGEAL REFLUX DISEASE
     Dosage: 10 MG, DAILY
     Route: 048
  10. BLOPRESS [Concomitant]
     Active Substance: CANDESARTAN CILEXETIL
     Indication: HYPERTENSION
     Dosage: 8 MG, DAILY
     Route: 048
  11. BIOFERMIN R [Concomitant]
     Active Substance: BACILLUS SUBTILIS\LACTOBACILLUS ACIDOPHILUS\STREPTOCOCCUS FAECAIS
     Dosage: 2 DF, DAILY
     Route: 048
  12. MAGMITT [Concomitant]
     Active Substance: MAGNESIUM OXIDE
     Dosage: 330 MG, TID
     Route: 048
  13. BONOTEO [Concomitant]
     Active Substance: MINODRONIC ACID
     Dosage: 50 MG, DAILY
  14. MUCOSTA [Concomitant]
     Active Substance: REBAMIPIDE
     Dosage: 100 MG, DAILY
     Route: 048
  15. SYMMETREL [Concomitant]
     Active Substance: AMANTADINE HYDROCHLORIDE
     Dosage: 100 MG, DAILY
     Route: 048
  16. CASAL [Concomitant]
     Active Substance: VIDARABINE
     Dosage: UNK
     Route: 062
  17. METHOTREXATE. [Concomitant]
     Active Substance: METHOTREXATE
     Indication: RHEUMATIC DISORDER
     Dosage: 4 MG, DAILY
     Route: 048

REACTIONS (10)
  - Hypotonia [Recovered/Resolved]
  - Dizziness [Recovered/Resolved]
  - Hyperventilation [Recovered/Resolved]
  - Vomiting [Recovered/Resolved]
  - Nausea [Recovered/Resolved]
  - Hypertension [Recovering/Resolving]
  - Hyperhidrosis [Recovered/Resolved]
  - Herpes virus infection [Recovered/Resolved]
  - Malaise [Recovered/Resolved]
  - Asthenia [Recovered/Resolved]

NARRATIVE: CASE EVENT DATE: 20171109
